FAERS Safety Report 4507203-6 (Version None)
Quarter: 2004Q4

REPORT INFORMATION
  Report Type: 
  Country: None (occurrence: None)
  Receive Date: 20041025
  Receipt Date: 20040609
  Transmission Date: 20050328
  Serious: Yes (Hospitalization)
  Sender: FDA-Public Use
  Company Number: US-JNJFOC-20040505091

PATIENT
  Age: 52 Year
  Sex: Female
  Weight: 76.2043 kg

DRUGS (5)
  1. REMICADE [Suspect]
     Indication: CROHN'S DISEASE
     Dosage: INTRAVENOUS
     Route: 042
  2. CELEBREX [Concomitant]
  3. NEXIUM [Concomitant]
  4. PREDNISONE [Concomitant]
  5. DETROL [Concomitant]

REACTIONS (4)
  - CHEST DISCOMFORT [None]
  - ERYTHEMA [None]
  - INCOHERENT [None]
  - INFUSION RELATED REACTION [None]
